FAERS Safety Report 4876565-2 (Version None)
Quarter: 2005Q4

REPORT INFORMATION
  Report Type: 
  Country: None (occurrence: None)
  Receive Date: 20051206
  Receipt Date: 20050907
  Transmission Date: 20060501
  Serious: Yes (Hospitalization, Other)
  Sender: FDA-Public Use
  Company Number: USA0509107219

PATIENT
  Age: 87 Year
  Sex: Female

DRUGS (3)
  1. PROZAC [Suspect]
     Dates: end: 20050101
  2. CYMBALTA [Suspect]
     Dosage: 30 MG AT BEDTIME
     Dates: start: 20050801
  3. PREDNISONE [Concomitant]

REACTIONS (6)
  - CHEST PAIN [None]
  - FATIGUE [None]
  - HYPERHIDROSIS [None]
  - MUSCULOSKELETAL CHEST PAIN [None]
  - SHOULDER PAIN [None]
  - SOMNOLENCE [None]
